FAERS Safety Report 9916629 (Version 4)
Quarter: 2014Q4

REPORT INFORMATION
  Report Type: Spontaneous
  Country: US (occurrence: US)
  Receive Date: 20140221
  Receipt Date: 20141204
  Transmission Date: 20150529
  Serious: Yes (Hospitalization, Other)
  Sender: FDA-Public Use
  Company Number: US-BAYER-2014-025237

PATIENT
  Age: 31 Year
  Sex: Female
  Weight: 68.27 kg

DRUGS (1)
  1. MIRENA [Suspect]
     Active Substance: LEVONORGESTREL
     Indication: CONTRACEPTION
     Dosage: 20 MCG/24HR, CONT
     Route: 015
     Dates: start: 200509, end: 200603

REACTIONS (13)
  - Peritoneal haemorrhage [None]
  - Fatigue [None]
  - Fallopian tube enlargement [None]
  - Ectopic pregnancy [None]
  - Pain [None]
  - Embedded device [None]
  - Abdominal pain [None]
  - Fluid retention [None]
  - Injury [None]
  - Pelvic pain [None]
  - Abdominal distension [None]
  - Anxiety [None]
  - Genital haemorrhage [None]

NARRATIVE: CASE EVENT DATE: 20110812
